APPROVED DRUG PRODUCT: TOBRADEX
Active Ingredient: DEXAMETHASONE; TOBRAMYCIN
Strength: 0.1%;0.3%
Dosage Form/Route: SUSPENSION/DROPS;OPHTHALMIC
Application: N050592 | Product #001 | TE Code: AB
Applicant: SANDOZ INC
Approved: Aug 18, 1988 | RLD: Yes | RS: Yes | Type: RX